FAERS Safety Report 19944364 (Version 3)
Quarter: 2025Q4

REPORT INFORMATION
  Report Type: Spontaneous
  Country: BR (occurrence: BR)
  Receive Date: 20211012
  Receipt Date: 20251202
  Transmission Date: 20260117
  Serious: Yes (Hospitalization)
  Sender: NOVARTIS
  Company Number: BR-NOVARTISPH-NVSC2021BR232057

PATIENT
  Age: 14 Year
  Sex: Male
  Weight: 53 kg

DRUGS (5)
  1. ELTROMBOPAG OLAMINE [Suspect]
     Active Substance: ELTROMBOPAG OLAMINE
     Indication: Bone marrow failure
     Dosage: 3 DOSAGE FORM, Q12H
     Route: 048
     Dates: start: 20210910
  2. CYCLOSPORINE [Suspect]
     Active Substance: CYCLOSPORINE
     Indication: Congenital aplasia
     Dosage: 1 DF, BID
     Route: 048
     Dates: start: 202109
  3. VALTREX [Concomitant]
     Active Substance: VALACYCLOVIR HYDROCHLORIDE
     Indication: Congenital aplasia
     Dosage: 500 MG, Q12H (1 TABLET)
     Route: 048
     Dates: start: 202109
  4. MAGNE B6 [Concomitant]
     Active Substance: MAGNESIUM\PYRIDOXINE
     Indication: Congenital aplasia
     Dosage: UNK, Q12H
     Route: 048
     Dates: start: 202109
  5. THYMOGLOBULINE [Concomitant]
     Active Substance: LAPINE T-LYMPHOCYTE IMMUNE GLOBULIN
     Indication: Congenital aplasia
     Dosage: UNK (STOPPED AFTER 1 WEEK)
     Route: 065
     Dates: start: 202109

REACTIONS (3)
  - Serum sickness [Recovered/Resolved]
  - Product use in unapproved indication [Unknown]
  - Inappropriate schedule of product administration [Unknown]

NARRATIVE: CASE EVENT DATE: 20210910
